FAERS Safety Report 8714412 (Version 2)
Quarter: 2013Q1

REPORT INFORMATION
  Report Type: Spontaneous
  Country: SE (occurrence: SE)
  Receive Date: 20120809
  Receipt Date: 20130222
  Transmission Date: 20140127
  Serious: Yes (Other)
  Sender: FDA-Public Use
  Company Number: SE-GENZYME-POMP-1002358

PATIENT
  Sex: Male
  Weight: 11.7 kg

DRUGS (6)
  1. MYOZYME [Suspect]
     Indication: GLYCOGEN STORAGE DISEASE TYPE II
     Dosage: 20 MG/KG, QW
     Route: 042
  2. MYOZYME [Suspect]
     Dosage: 20 MG/KG, Q2W
     Route: 042
     Dates: start: 20110513
  3. DURBIS [Concomitant]
     Indication: CARDIAC DISORDER
     Dosage: 100 MG/ML, UNK
     Route: 065
     Dates: start: 201105
  4. METOPROLOLTARTRAAT ALPHARMA [Concomitant]
     Indication: CARDIAC DISORDER
     Dosage: 5 MG, BID
     Route: 065
     Dates: start: 201105
  5. NEXIUM [Concomitant]
     Indication: GASTROOESOPHAGEAL REFLUX DISEASE
     Dosage: 10 MG, UNK
     Route: 065
     Dates: start: 201102
  6. ANTIBIOTICS [Concomitant]
     Indication: INFECTION
     Dosage: UNK UNK, UNK
     Route: 065
     Dates: start: 2012

REACTIONS (6)
  - Antibody test abnormal [Unknown]
  - Brain stem syndrome [Unknown]
  - Breathing-related sleep disorder [Unknown]
  - Eating disorder [Unknown]
  - Dysphagia [Unknown]
  - Pneumonia [Unknown]
